FAERS Safety Report 5036172-8 (Version None)
Quarter: 2006Q2

REPORT INFORMATION
  Report Type: 
  Country: None (occurrence: None)
  Receive Date: 20060627
  Receipt Date: 20060518
  Transmission Date: 20061013
  Serious: Yes (Other)
  Sender: FDA-Public Use
  Company Number: US-MERCK-0605USA03741

PATIENT
  Age: 9 Year
  Sex: Female
  Weight: 32 kg

DRUGS (5)
  1. SINGULAIR [Suspect]
     Indication: BRONCHIAL HYPERACTIVITY
     Route: 048
     Dates: start: 20050101, end: 20060101
  2. SINGULAIR [Suspect]
     Route: 048
     Dates: start: 20050101, end: 20060101
  3. SINGULAIR [Suspect]
     Indication: ASTHMA EXERCISE INDUCED
     Route: 048
     Dates: start: 20050101, end: 20060101
  4. SINGULAIR [Suspect]
     Route: 048
     Dates: start: 20050101, end: 20060101
  5. ALBUTEROL [Concomitant]
     Indication: ASTHMA
     Route: 065

REACTIONS (6)
  - ABDOMINAL PAIN UPPER [None]
  - ADVERSE EVENT [None]
  - MUSCLE SPASMS [None]
  - MUSCULAR WEAKNESS [None]
  - NUCLEAR MAGNETIC RESONANCE IMAGING ABNORMAL [None]
  - SENSATION OF HEAVINESS [None]
